FAERS Safety Report 8340187-1 (Version None)
Quarter: 2012Q2

REPORT INFORMATION
  Report Type: 
  Country: None (occurrence: None)
  Receive Date: 20120507
  Receipt Date: 20120423
  Transmission Date: 20120825
  Serious: Yes (Hospitalization, Other)
  Sender: FDA-Public Use
  Company Number: AU-BRISTOL-MYERS SQUIBB COMPANY-16290405

PATIENT
  Age: 50 Year
  Sex: Female

DRUGS (1)
  1. YERVOY [Suspect]
     Indication: METASTATIC MALIGNANT MELANOMA
     Dosage: CYCLE 3 INFUSION ON 12 DECEMBER 2011 LAST INF:21NOV2011
     Route: 042
     Dates: start: 20111031

REACTIONS (6)
  - DIARRHOEA [None]
  - TACHYCARDIA [None]
  - DEHYDRATION [None]
  - LIVER FUNCTION TEST ABNORMAL [None]
  - ABDOMINAL TENDERNESS [None]
  - NAUSEA [None]
